FAERS Safety Report 6233204-6 (Version None)
Quarter: 2009Q2

REPORT INFORMATION
  Report Type: 
  Country: None (occurrence: None)
  Receive Date: 20090617
  Receipt Date: 20090605
  Transmission Date: 20091009
  Serious: Yes (Other)
  Sender: FDA-Public Use
  Company Number: PHHY2009JP22379

PATIENT

DRUGS (3)
  1. NEORAL [Suspect]
     Dosage: UNK
     Route: 048
  2. SLOW-K [Suspect]
     Dosage: UNK
     Route: 048
  3. VOGLIBOSE [Concomitant]

REACTIONS (1)
  - PNEUMATOSIS INTESTINALIS [None]
